FAERS Safety Report 5535016-5 (Version None)
Quarter: 2007Q4

REPORT INFORMATION
  Report Type: 
  Country: None (occurrence: None)
  Receive Date: 20071205
  Receipt Date: 20071129
  Transmission Date: 20080405
  Serious: Yes (Disabling)
  Sender: FDA-Public Use
  Company Number: GB-MERCK-0711GBR00130

PATIENT
  Age: 68 Year
  Sex: Male

DRUGS (2)
  1. ZOCOR [Suspect]
     Indication: MIXED HYPERLIPIDAEMIA
     Route: 048
     Dates: start: 20060330, end: 20060417
  2. DICLOFENAC [Concomitant]
     Indication: OSTEOARTHRITIS
     Route: 048
     Dates: start: 20050104

REACTIONS (2)
  - MUSCULOSKELETAL STIFFNESS [None]
  - MYOPATHY [None]
